FAERS Safety Report 13523855 (Version 2)
Quarter: 2017Q3

REPORT INFORMATION
  Report Type: Spontaneous
  Country: US (occurrence: US)
  Receive Date: 20170508
  Receipt Date: 20170810
  Transmission Date: 20171127
  Serious: No
  Sender: FDA-Public Use
  Company Number: US-VIFOR (INTERNATIONAL) INC.-VIT-2017-04349

PATIENT
  Sex: Male

DRUGS (14)
  1. VELTASSA [Suspect]
     Active Substance: PATIROMER
     Indication: HYPERKALAEMIA
     Route: 048
     Dates: start: 20160812
  2. VELTASSA [Suspect]
     Active Substance: PATIROMER
     Route: 048
  3. SIMVASTATIN. [Concomitant]
     Active Substance: SIMVASTATIN
  4. NIFEDIPINE. [Concomitant]
     Active Substance: NIFEDIPINE
  5. CELLCEPT [Concomitant]
     Active Substance: MYCOPHENOLATE MOFETIL\MYCOPHENOLATE MOFETIL HYDROCHLORIDE
  6. ASPIR-81 [Concomitant]
     Active Substance: ASPIRIN
  7. VELTASSA [Suspect]
     Active Substance: PATIROMER
  8. HYDROCHLOROTHIAZIDE/METOPROLOL [Concomitant]
  9. DIOVAN [Concomitant]
     Active Substance: VALSARTAN
  10. OMEPRAZOLE. [Concomitant]
     Active Substance: OMEPRAZOLE
  11. MAGNESIUM [Concomitant]
     Active Substance: MAGNESIUM
  12. MAGNESIUM [Concomitant]
     Active Substance: MAGNESIUM
  13. HYDROCHLOROTHIAZIDE. [Concomitant]
     Active Substance: HYDROCHLOROTHIAZIDE
  14. PROGRAF [Concomitant]
     Active Substance: TACROLIMUS\TACROLIMUS ANHYDROUS

REACTIONS (4)
  - Feeling abnormal [Unknown]
  - Product quality issue [Unknown]
  - Abdominal discomfort [Unknown]
  - Product taste abnormal [Unknown]
